FAERS Safety Report 10771433 (Version 1)
Quarter: 2015Q1

REPORT INFORMATION
  Report Type: Spontaneous
  Country: US (occurrence: US)
  Receive Date: 20150206
  Receipt Date: 20150206
  Transmission Date: 20150721
  Serious: Yes (Hospitalization, Other)
  Sender: FDA-Public Use
  Company Number: US-GLAXOSMITHKLINE-US2015014110

PATIENT
  Age: 38 Year
  Sex: Female

DRUGS (22)
  1. DEXILANT [Concomitant]
     Active Substance: DEXLANSOPRAZOLE
  2. CYCLOBENZAPRINE [Concomitant]
     Active Substance: CYCLOBENZAPRINE
  3. HYDROCORTISONE. [Concomitant]
     Active Substance: HYDROCORTISONE
  4. RAPAFLO [Concomitant]
     Active Substance: SILODOSIN
  5. POTASSIUM [Concomitant]
     Active Substance: POTASSIUM
  6. ATIVAN [Concomitant]
     Active Substance: LORAZEPAM
  7. MORPHINE SULFATE EXTENDED-RELEASE [Concomitant]
     Active Substance: MORPHINE SULFATE
  8. NUCYNTA [Concomitant]
     Active Substance: TAPENTADOL HYDROCHLORIDE
  9. SYNTHROID [Concomitant]
     Active Substance: LEVOTHYROXINE SODIUM
  10. XANAX [Concomitant]
     Active Substance: ALPRAZOLAM
  11. ZOFRAN ODT [Concomitant]
     Active Substance: ONDANSETRON HYDROCHLORIDE
  12. HYDROCHLOROTHIAZIDE. [Concomitant]
     Active Substance: HYDROCHLOROTHIAZIDE
  13. BENLYSTA [Suspect]
     Active Substance: BELIMUMAB
  14. PLAQUENIL [Concomitant]
     Active Substance: HYDROXYCHLOROQUINE SULFATE
  15. FOLIC ACID. [Concomitant]
     Active Substance: FOLIC ACID
  16. EXALGO [Concomitant]
     Active Substance: HYDROMORPHONE HYDROCHLORIDE
  17. GRALISE [Concomitant]
     Active Substance: GABAPENTIN
  18. LAMICTAL [Concomitant]
     Active Substance: LAMOTRIGINE
  19. VITAMIN D [Concomitant]
     Active Substance: CHOLECALCIFEROL
  20. BENLYSTA [Suspect]
     Active Substance: BELIMUMAB
     Indication: SYSTEMIC LUPUS ERYTHEMATOSUS
     Dosage: UNK, CYC
     Route: 042
  21. AMBIEN [Concomitant]
     Active Substance: ZOLPIDEM TARTRATE
  22. METHOTREXATE INJECTION [Concomitant]
     Active Substance: METHOTREXATE

REACTIONS (6)
  - Nausea [Recovered/Resolved]
  - Pyelonephritis [Recovered/Resolved]
  - Vomiting [Recovered/Resolved]
  - Cystitis [Recovered/Resolved]
  - Somnolence [Unknown]
  - Dehydration [Recovered/Resolved]

NARRATIVE: CASE EVENT DATE: 20150116
